FAERS Safety Report 16750524 (Version 1)
Quarter: 2019Q3

REPORT INFORMATION
  Report Type: Spontaneous
  Country: US (occurrence: US)
  Receive Date: 20190710
  Receipt Date: 20190710
  Transmission Date: 20191005
  Serious: No
  Sender: FDA-Public Use
  Company Number: None

PATIENT
  Age: 42 Year
  Sex: Female

DRUGS (1)
  1. MYCOPHENOLATE MOFETIL TABLET [Suspect]
     Active Substance: MYCOPHENOLATE MOFETIL
     Dates: start: 201804

REACTIONS (3)
  - Product dose omission [None]
  - Hypoaesthesia [None]
  - Paraesthesia [None]

NARRATIVE: CASE EVENT DATE: 20190710
